FAERS Safety Report 19293161 (Version 1)
Quarter: 2021Q2

REPORT INFORMATION
  Report Type: Spontaneous
  Country: US (occurrence: US)
  Receive Date: 20210524
  Receipt Date: 20210524
  Transmission Date: 20210717
  Serious: No
  Sender: FDA-Public Use
  Company Number: US-MYLANLABS-2021M1026566

PATIENT
  Sex: Male

DRUGS (1)
  1. ACETAMINOPHEN INJECTION [Suspect]
     Active Substance: ACETAMINOPHEN
     Indication: PRODUCT USED FOR UNKNOWN INDICATION
     Dosage: UNK 10MG/ML

REACTIONS (4)
  - Accidental exposure to product [Recovering/Resolving]
  - Product quality issue [Unknown]
  - Burns first degree [Recovering/Resolving]
  - Product physical issue [Recovering/Resolving]

NARRATIVE: CASE EVENT DATE: 20210430
